FAERS Safety Report 7301488-9 (Version None)
Quarter: 2011Q1

REPORT INFORMATION
  Report Type: 
  Country: None (occurrence: None)
  Receive Date: 20110218
  Receipt Date: 20100510
  Transmission Date: 20110831
  Serious: Yes (Other)
  Sender: FDA-Public Use
  Company Number: US-BRISTOL-MYERS SQUIBB COMPANY-15099294

PATIENT
  Age: 24 Year
  Sex: Female

DRUGS (1)
  1. KENALOG [Suspect]
     Indication: INTERVERTEBRAL DISC PROTRUSION
     Dosage: 2 INJ
     Route: 008
     Dates: start: 20100301

REACTIONS (2)
  - FLUID RETENTION [None]
  - CUSHINGOID [None]
